FAERS Safety Report 10175191 (Version 3)
Quarter: 2014Q2

REPORT INFORMATION
  Report Type: Spontaneous
  Country: JP (occurrence: JP)
  Receive Date: 20140515
  Receipt Date: 20140602
  Transmission Date: 20141212
  Serious: No
  Sender: FDA-Public Use
  Company Number: JP-PFIZER INC-2014128236

PATIENT
  Age: 66 Year
  Sex: Male

DRUGS (5)
  1. SOLU-MEDROL [Suspect]
     Dosage: 500 MG, DAILY
     Route: 041
     Dates: start: 20140508, end: 20140508
  2. SOLU-MEDROL [Suspect]
     Dosage: 125 MG, 1X/DAY
     Route: 041
     Dates: start: 20140509, end: 20140509
  3. SOLU-MEDROL [Suspect]
     Dosage: 125 MG, UNK
     Route: 042
     Dates: start: 20140510
  4. CELECOX [Concomitant]
     Dosage: UNK
     Route: 048
  5. LYRICA [Concomitant]
     Dosage: UNK
     Route: 048

REACTIONS (1)
  - Tachycardia [Recovered/Resolved]
